FAERS Safety Report 18681450 (Version 1)
Quarter: 2020Q4

REPORT INFORMATION
  Report Type: Spontaneous
  Country: US (occurrence: US)
  Receive Date: 20201229
  Receipt Date: 20201229
  Transmission Date: 20210114
  Serious: Yes (Other)
  Sender: FDA-Public Use
  Company Number: None

PATIENT
  Sex: Female

DRUGS (2)
  1. NEBULIZED ALBUTEROL SULFATE 0.63MG [Suspect]
     Active Substance: ALBUTEROL SULFATE
  2. ALBUTEROL SULFATE 90MCG [Suspect]
     Active Substance: ALBUTEROL SULFATE

REACTIONS (1)
  - Drug intolerance [None]
